FAERS Safety Report 23423910 (Version 1)
Quarter: 2024Q1

REPORT INFORMATION
  Report Type: Spontaneous
  Country: US (occurrence: US)
  Receive Date: 20240119
  Receipt Date: 20240119
  Transmission Date: 20240410
  Serious: No
  Sender: FDA-Public Use
  Company Number: US-009507513-2401USA007551

PATIENT
  Age: 59 Year
  Sex: Female

DRUGS (17)
  1. BELSOMRA [Suspect]
     Active Substance: SUVOREXANT
     Indication: Insomnia
     Dosage: 10 MILLIGRAM, QD
     Route: 048
     Dates: start: 20230921
  2. BELSOMRA [Suspect]
     Active Substance: SUVOREXANT
     Dosage: 15 MILLIGRAM, QD
     Route: 048
  3. NALTREXONE [Concomitant]
     Active Substance: NALTREXONE
  4. VITAMINS NOS [Concomitant]
     Active Substance: VITAMINS
  5. HERBALS\MELISSA OFFICINALIS [Concomitant]
     Active Substance: HERBALS\MELISSA OFFICINALIS
  6. ELDERBERRY EXTRACT [Concomitant]
  7. MAGNESIUM [Concomitant]
     Active Substance: MAGNESIUM
  8. ECHINACEA+ [Concomitant]
  9. JUJUBE [Concomitant]
  10. MAGNOLIA SPP. BARK [Concomitant]
  11. WHITE PEONY [Concomitant]
  12. DONG QUAI [ANGELICA SINENSIS] [Concomitant]
  13. REHMANNIA [Concomitant]
  14. VITAMIN B12 [Concomitant]
     Active Substance: CYANOCOBALAMIN
  15. VITAMIN C [Concomitant]
     Active Substance: ASCORBIC ACID
  16. ZINC [Concomitant]
     Active Substance: PYRITHIONE ZINC\ZINC\ZINC CHLORIDE
  17. VITAMIN D3 [Concomitant]
     Active Substance: CHOLECALCIFEROL

REACTIONS (2)
  - Therapeutic product effect decreased [Recovered/Resolved]
  - Therapeutic product effect decreased [Not Recovered/Not Resolved]

NARRATIVE: CASE EVENT DATE: 20231101
